FAERS Safety Report 25377823 (Version 1)
Quarter: 2025Q2

REPORT INFORMATION
  Report Type: Spontaneous
  Country: US (occurrence: US)
  Receive Date: 20250530
  Receipt Date: 20250530
  Transmission Date: 20250716
  Serious: No
  Sender: CIPLA
  Company Number: US-CIPLA LTD.-2024US03798

PATIENT

DRUGS (6)
  1. ALBUTEROL [Suspect]
     Active Substance: ALBUTEROL
     Indication: Chronic obstructive pulmonary disease
     Dates: start: 20240401
  2. ALBUTEROL [Suspect]
     Active Substance: ALBUTEROL
     Dates: start: 202404
  3. LISINOPRIL [Concomitant]
     Active Substance: LISINOPRIL
     Indication: Cerebrovascular accident
     Dosage: UNK, QD (ONCE A DAY) (8 YEARS AGO)
     Route: 065
  4. CLOPIDOGREL [Concomitant]
     Active Substance: CLOPIDOGREL BISULFATE
     Indication: Cerebrovascular accident
     Dosage: UNK, (ONCE A DAY) (8 YEARS AGO)
     Route: 065
  5. ATORVASTATIN [Concomitant]
     Active Substance: ATORVASTATIN
     Indication: Cerebrovascular accident
     Dosage: UNK, QD (ONCE A DAY) (8 YEARS AGO)
     Route: 065
  6. HYDROCODONE [Concomitant]
     Active Substance: HYDROCODONE
     Indication: Cerebrovascular accident
     Route: 065

REACTIONS (3)
  - Incorrect dose administered [Unknown]
  - Product cleaning inadequate [Unknown]
  - Device delivery system issue [Unknown]

NARRATIVE: CASE EVENT DATE: 20240401
